FAERS Safety Report 12450754 (Version 1)
Quarter: 2016Q2

REPORT INFORMATION
  Report Type: Spontaneous
  Country: US (occurrence: None)
  Receive Date: 20160608
  Receipt Date: 20160608
  Transmission Date: 20160815
  Serious: Yes (Other)
  Sender: FDA-Public Use
  Company Number: None

PATIENT
  Age: 51 Year
  Sex: Female
  Weight: 54.43 kg

DRUGS (1)
  1. CIPROFLOXACIN, 500 MG [Suspect]
     Active Substance: CIPROFLOXACIN
     Indication: URINARY TRACT INFECTION
     Route: 048
     Dates: start: 20160517, end: 20160517

REACTIONS (4)
  - Abdominal pain [None]
  - Asthenia [None]
  - Chills [None]
  - Muscle spasms [None]

NARRATIVE: CASE EVENT DATE: 20160517
